FAERS Safety Report 25748430 (Version 1)
Quarter: 2025Q3

REPORT INFORMATION
  Report Type: Spontaneous
  Country: US (occurrence: US)
  Receive Date: 20250902
  Receipt Date: 20250902
  Transmission Date: 20251021
  Serious: No
  Sender: GLAXOSMITHKLINE
  Company Number: US-GSK-US2025AMR097846

PATIENT
  Sex: Female

DRUGS (1)
  1. BENLYSTA [Suspect]
     Active Substance: BELIMUMAB
     Indication: Product used for unknown indication
     Dosage: 200 MG, WE

REACTIONS (5)
  - Chapped lips [Not Recovered/Not Resolved]
  - Rhinorrhoea [Unknown]
  - Skin exfoliation [Unknown]
  - Alopecia [Unknown]
  - Pain [Unknown]
